FAERS Safety Report 17407485 (Version 1)
Quarter: 2020Q1

REPORT INFORMATION
  Report Type: Spontaneous
  Country: US (occurrence: US)
  Receive Date: 20200128
  Receipt Date: 20200128
  Transmission Date: 20200409
  Serious: Yes (Hospitalization)
  Sender: FDA-Public Use
  Company Number: None

PATIENT
  Age: 89 Year
  Sex: Female

DRUGS (1)
  1. BOSULIF [Suspect]
     Active Substance: BOSUTINIB MONOHYDRATE
     Indication: CHRONIC MYELOID LEUKAEMIA
     Dosage: ?          OTHER FREQUENCY:1 TAB DAILY;?
     Route: 048
     Dates: start: 20191125

REACTIONS (5)
  - Bronchitis [None]
  - Fluid retention [None]
  - Diarrhoea [None]
  - Gastritis [None]
  - Abdominal pain upper [None]
